FAERS Safety Report 6420378-7 (Version None)
Quarter: 2009Q4

REPORT INFORMATION
  Report Type: 
  Country: None (occurrence: None)
  Receive Date: 20091021
  Receipt Date: 20090604
  Transmission Date: 20100525
  Serious: No
  Sender: FDA-Public Use
  Company Number: ALL1-2009-01531

PATIENT
  Age: 53 Year
  Sex: Female
  Weight: 81.6 kg

DRUGS (3)
  1. VYVANSE [Suspect]
     Indication: ATTENTION DEFICIT/HYPERACTIVITY DISORDER
     Dosage: 70 MG, 1X/DAY:QD, ORAL; 30 MG, 1X/DAY;;QD, ORAL
     Route: 048
     Dates: start: 20090201, end: 20090301
  2. VYVANSE [Suspect]
     Indication: ATTENTION DEFICIT/HYPERACTIVITY DISORDER
     Dosage: 70 MG, 1X/DAY:QD, ORAL; 30 MG, 1X/DAY;;QD, ORAL
     Route: 048
     Dates: start: 20090528
  3. CYMBALTA [Concomitant]

REACTIONS (2)
  - BRUXISM [None]
  - DYSKINESIA [None]
